FAERS Safety Report 12707850 (Version 1)
Quarter: 2016Q3

REPORT INFORMATION
  Report Type: Spontaneous
  Country: CN (occurrence: CN)
  Receive Date: 20160901
  Receipt Date: 20160901
  Transmission Date: 20161109
  Serious: Yes (Other)
  Sender: FDA-Public Use
  Company Number: CN-SA-2016SA157303

PATIENT
  Age: 56 Year
  Sex: Male
  Weight: 67 kg

DRUGS (4)
  1. ENDOSTAR [Suspect]
     Active Substance: ENDOSTATIN
     Indication: PROPHYLAXIS
     Route: 065
     Dates: start: 20160622, end: 20160622
  2. NEDAPLATIN [Suspect]
     Active Substance: NEDAPLATIN
     Indication: PROPHYLAXIS
     Route: 065
     Dates: start: 20160622, end: 20160622
  3. TAXOTERE [Suspect]
     Active Substance: DOCETAXEL
     Indication: PROPHYLAXIS
     Route: 041
     Dates: start: 20160615, end: 20160615
  4. NEDAPLATIN [Suspect]
     Active Substance: NEDAPLATIN
     Indication: PROPHYLAXIS
     Route: 065
     Dates: start: 20160619, end: 20160619

REACTIONS (1)
  - Bone marrow failure [Recovering/Resolving]

NARRATIVE: CASE EVENT DATE: 20160624
